FAERS Safety Report 15906476 (Version 1)
Quarter: 2019Q1

REPORT INFORMATION
  Report Type: Spontaneous
  Country: US (occurrence: US)
  Receive Date: 20190203
  Receipt Date: 20190203
  Transmission Date: 20190417
  Serious: Yes (Disabling)
  Sender: FDA-Public Use
  Company Number: None

PATIENT
  Age: 64 Year
  Sex: Female
  Weight: 75.6 kg

DRUGS (4)
  1. BACLOFEN. [Suspect]
     Active Substance: BACLOFEN
     Indication: PUDENDAL CANAL SYNDROME
     Route: 067
     Dates: start: 20190104, end: 20190118
  2. DESIPRAMINE [Concomitant]
     Active Substance: DESIPRAMINE
  3. VITAMIN D3 [Suspect]
     Active Substance: CHOLECALCIFEROL
  4. GABAPENTIN. [Concomitant]
     Active Substance: GABAPENTIN

REACTIONS (3)
  - Lichenoid keratosis [None]
  - Insomnia [None]
  - Dermatitis contact [None]

NARRATIVE: CASE EVENT DATE: 20190104
